FAERS Safety Report 6715195 (Version 11)
Quarter: 2014Q3

REPORT INFORMATION
  Report Type: Spontaneous
  Country: JP (occurrence: JP)
  Receive Date: 20080731
  Receipt Date: 20140915
  Transmission Date: 20150326
  Serious: Yes (Hospitalization, Disabling, Other)
  Sender: FDA-Public Use
  Company Number: PHBS2007JP14767

PATIENT
  Age: 39 Year
  Sex: Male
  Weight: 62 kg

DRUGS (19)
  1. NORVASC [Concomitant]
     Active Substance: AMLODIPINE BESYLATE
  2. URINORM [Concomitant]
     Active Substance: BENZBROMARONE
  3. SODIUM BICARBONATE. [Concomitant]
     Active Substance: SODIUM BICARBONATE
  4. CLARUTE [Concomitant]
  5. EMPECID [Concomitant]
     Route: 048
  6. MOBIC [Concomitant]
     Active Substance: MELOXICAM
     Indication: PAIN
     Dosage: 1 DF, UNK
     Dates: start: 20070920, end: 20070928
  7. MYCOPHENOLATE MOFETIL. [Concomitant]
     Active Substance: MYCOPHENOLATE MOFETIL
  8. BUFFERIN [Concomitant]
     Active Substance: ASPIRIN
  9. NEORAL [Concomitant]
     Active Substance: CYCLOSPORINE
     Dosage: 200 MG, DAILY
     Route: 048
     Dates: start: 20010321, end: 20070808
  10. PARIET [Concomitant]
     Active Substance: RABEPRAZOLE SODIUM
  11. CELLCEPT [Concomitant]
     Active Substance: MYCOPHENOLATE MOFETIL\MYCOPHENOLATE MOFETIL HYDROCHLORIDE
     Indication: HEART TRANSPLANT
     Dosage: 2.5 G, UNK
     Route: 048
     Dates: start: 20010322, end: 20070804
  12. BLOPRESS [Concomitant]
     Active Substance: CANDESARTAN CILEXETIL
  13. LIPITOR [Concomitant]
     Active Substance: ATORVASTATIN CALCIUM
  14. CERTICAN [Suspect]
     Active Substance: EVEROLIMUS
     Indication: HEART TRANSPLANT
     Dosage: 1.5 MG/D
     Route: 048
     Dates: start: 20070805, end: 20070822
  15. CERTICAN [Suspect]
     Active Substance: EVEROLIMUS
     Dosage: 1.5 MG, DAILY
     Route: 048
     Dates: start: 20070906, end: 20071010
  16. CERTICAN [Suspect]
     Active Substance: EVEROLIMUS
     Dosage: 1.75 MG, DAILY
     Route: 048
     Dates: start: 20070823, end: 20070905
  17. NEORAL [Concomitant]
     Active Substance: CYCLOSPORINE
     Dosage: 150 MG, UNK
     Route: 048
     Dates: start: 20070809
  18. NEORAL [Concomitant]
     Active Substance: CYCLOSPORINE
     Indication: HEART TRANSPLANT
     Dosage: 150 MG, UNK
     Route: 048
     Dates: start: 20010319, end: 20010320
  19. BAKTAR [Concomitant]
     Active Substance: SULFAMETHOXAZOLE\TRIMETHOPRIM

REACTIONS (21)
  - Haemorrhoids [Recovering/Resolving]
  - Dysphagia [Recovered/Resolved]
  - Gait disturbance [Not Recovered/Not Resolved]
  - Pain [Not Recovered/Not Resolved]
  - Red blood cell count decreased [Recovering/Resolving]
  - Stomatitis [Recovered/Resolved]
  - Arthritis [Recovering/Resolving]
  - Abasia [Not Recovered/Not Resolved]
  - Feeling hot [Not Recovered/Not Resolved]
  - C-reactive protein increased [Recovering/Resolving]
  - Arthralgia [Not Recovered/Not Resolved]
  - Erythropenia [Recovering/Resolving]
  - Haemoglobin decreased [Recovering/Resolving]
  - Haematocrit decreased [Recovering/Resolving]
  - Purulence [Not Recovered/Not Resolved]
  - Pyrexia [Not Recovered/Not Resolved]
  - Quality of life decreased [Not Recovered/Not Resolved]
  - Coronary artery stenosis [Unknown]
  - Alopecia [Recovering/Resolving]
  - Drug level decreased [Unknown]
  - Speech disorder [Recovered/Resolved]

NARRATIVE: CASE EVENT DATE: 20070819
